FAERS Safety Report 11925207 (Version 2)
Quarter: 2016Q1

REPORT INFORMATION
  Report Type: Spontaneous
  Country: TR (occurrence: TR)
  Receive Date: 20160118
  Receipt Date: 20160224
  Transmission Date: 20160526
  Serious: Yes (Life-Threatening, Hospitalization)
  Sender: FDA-Public Use
  Company Number: TR-MYLANLABS-2016M1001946

PATIENT

DRUGS (1)
  1. FENTANYL. [Suspect]
     Active Substance: FENTANYL
     Indication: ARTHRALGIA
     Dosage: 3 PATCHES AT 75 MG/H EACH
     Route: 062

REACTIONS (8)
  - Dizziness [Unknown]
  - Hypotension [Unknown]
  - Intentional product misuse [Unknown]
  - Syncope [Unknown]
  - Respiratory depression [Recovering/Resolving]
  - Bradycardia [Unknown]
  - Accidental overdose [Unknown]
  - Acute coronary syndrome [Recovering/Resolving]
